FAERS Safety Report 15493606 (Version 1)
Quarter: 2018Q4

REPORT INFORMATION
  Report Type: Spontaneous
  Country: US (occurrence: US)
  Receive Date: 20181012
  Receipt Date: 20181012
  Transmission Date: 20190205
  Serious: No
  Sender: FDA-Public Use
  Company Number: US-ASTRAZENECA-2018SF19328

PATIENT
  Sex: Female
  Weight: 105.7 kg

DRUGS (20)
  1. BUDESONIDE. [Suspect]
     Active Substance: BUDESONIDE
     Dosage: 0.5MG 2ML TWO TIMES A DAY
     Route: 055
  2. LISINOPRIL. [Suspect]
     Active Substance: LISINOPRIL
     Indication: BLOOD PRESSURE ABNORMAL
     Route: 048
  3. FERROUS SULFATE. [Concomitant]
     Active Substance: FERROUS SULFATE
     Dosage: 325.0MG UNKNOWN
     Route: 048
  4. ALPRAZOLAM. [Concomitant]
     Active Substance: ALPRAZOLAM
     Indication: NERVOUS SYSTEM DISORDER
     Dosage: 0.5MG TAKES A HALF
  5. CALCIUM CARBONATE AND VIT D [Concomitant]
     Dosage: CALCIUM CARBONATE 600MG AND VIT D 400MG
     Route: 048
  6. CARVEDILOL. [Concomitant]
     Active Substance: CARVEDILOL
     Dosage: 6.25 DAILY
  7. TUDORZA PRESSAIR [Suspect]
     Active Substance: ACLIDINIUM BROMIDE
     Indication: CHRONIC OBSTRUCTIVE PULMONARY DISEASE
     Route: 055
  8. AMLODIPINE [Concomitant]
     Active Substance: AMLODIPINE BESYLATE
     Indication: ANXIETY
     Dosage: TWICE A DAY BUT HAS TAKEN IT 3 TIMES A DAY BUT DOES NOT TAKE IT ALL THE TIME
  9. SPIRONOLACTONE. [Concomitant]
     Active Substance: SPIRONOLACTONE
  10. IPRATROPIUM BROMIDE ALBUTEROL [Concomitant]
     Dosage: 0.5MG 3MG PER 3ML FOUR TIMES A DAY
     Route: 055
  11. SODIUM CHLORIDE. [Concomitant]
     Active Substance: SODIUM CHLORIDE
     Dosage: 7 PERCENT TWO TIMES A DAY
     Route: 055
  12. MONTELUKAST [Concomitant]
     Active Substance: MONTELUKAST SODIUM
  13. FUROSEMIDE. [Concomitant]
     Active Substance: FUROSEMIDE
     Indication: FLUID RETENTION
     Route: 048
  14. CETIRIZINE [Concomitant]
     Active Substance: CETIRIZINE HYDROCHLORIDE
     Indication: BLOOD PRESSURE ABNORMAL
     Route: 048
  15. PANTOPRAZOLE SODIUM. [Concomitant]
     Active Substance: PANTOPRAZOLE SODIUM
     Dosage: 40.0MG UNKNOWN
  16. ATORVASTATIN [Concomitant]
     Active Substance: ATORVASTATIN
  17. ALPRAZOLAM. [Concomitant]
     Active Substance: ALPRAZOLAM
     Indication: ANXIETY
     Dosage: 0.5MG TAKES A HALF
  18. TUDORZA PRESSAIR [Suspect]
     Active Substance: ACLIDINIUM BROMIDE
     Indication: ASTHMA
     Route: 055
  19. XAREILTO [Concomitant]
     Indication: ANTICOAGULANT THERAPY
     Route: 048
  20. AMLODIPINE [Concomitant]
     Active Substance: AMLODIPINE BESYLATE
     Indication: ANXIETY

REACTIONS (3)
  - Dyspnoea [Not Recovered/Not Resolved]
  - Device malfunction [Unknown]
  - Product dose omission [Not Recovered/Not Resolved]
